FAERS Safety Report 9526906 (Version 3)
Quarter: 2013Q4

REPORT INFORMATION
  Report Type: Report from Study
  Country: US (occurrence: US)
  Receive Date: 20130916
  Receipt Date: 20131016
  Transmission Date: 20140711
  Serious: Yes (Other)
  Sender: FDA-Public Use
  Company Number: US-US-EMD SERONO, INC.-7236532

PATIENT
  Age: 54 Year
  Sex: Female

DRUGS (2)
  1. REBIF [Suspect]
     Indication: PRODUCT USED FOR UNKNOWN INDICATION
     Route: 058
     Dates: start: 20130702
  2. SYNTHROID [Concomitant]
     Indication: THYROID DISORDER

REACTIONS (6)
  - Oesophageal stenosis [Unknown]
  - Cellulitis [Not Recovered/Not Resolved]
  - Weight increased [Not Recovered/Not Resolved]
  - Arthropod bite [Unknown]
  - Injection site vesicles [Not Recovered/Not Resolved]
  - Pain in extremity [Unknown]
